FAERS Safety Report 7296152-9 (Version None)
Quarter: 2011Q1

REPORT INFORMATION
  Report Type: 
  Country: None (occurrence: None)
  Receive Date: 20110216
  Receipt Date: 20110214
  Transmission Date: 20110831
  Serious: Yes (Other)
  Sender: FDA-Public Use
  Company Number: BR-ROCHE-759531

PATIENT
  Sex: Male
  Weight: 65 kg

DRUGS (1)
  1. ROACUTAN [Suspect]
     Indication: ACNE
     Route: 048
     Dates: start: 20100901

REACTIONS (6)
  - NAUSEA [None]
  - SYNCOPE [None]
  - BLOOD PRESSURE DECREASED [None]
  - EPISTAXIS [None]
  - GASTRITIS [None]
  - LIP DRY [None]
